FAERS Safety Report 19010814 (Version 1)
Quarter: 2021Q1

REPORT INFORMATION
  Report Type: Spontaneous
  Country: US (occurrence: US)
  Receive Date: 20210316
  Receipt Date: 20210316
  Transmission Date: 20210420
  Serious: No
  Sender: FDA-Public Use
  Company Number: US-GLAXOSMITHKLINE-USCH2021012944

PATIENT
  Age: 39 Year
  Sex: Female

DRUGS (2)
  1. ADVIL DUAL ACTION WITH ACETAMINOPHEN [Suspect]
     Active Substance: ACETAMINOPHEN\IBUPROFEN
     Indication: PAIN
  2. ADVIL LIQUI?GELS [Suspect]
     Active Substance: IBUPROFEN
     Indication: PAIN

REACTIONS (4)
  - Ulcer [Unknown]
  - Illness [Recovered/Resolved]
  - Therapeutic product effect incomplete [Unknown]
  - Abdominal pain upper [Recovered/Resolved]
